FAERS Safety Report 8261337-1 (Version None)
Quarter: 2012Q2

REPORT INFORMATION
  Report Type: 
  Country: None (occurrence: None)
  Receive Date: 20120405
  Receipt Date: 20120328
  Transmission Date: 20120825
  Serious: Yes (Hospitalization)
  Sender: FDA-Public Use
  Company Number: US-BAYER-2011-091133

PATIENT
  Age: 20 Year
  Sex: Female
  Weight: 84 kg

DRUGS (3)
  1. YASMIN [Suspect]
     Indication: CONTRACEPTION
     Dosage: UNK
     Route: 048
     Dates: start: 20050201, end: 20051201
  2. ASPIRIN [Concomitant]
     Dosage: DAILY
     Route: 048
  3. DARVOCET [Concomitant]
     Indication: PAIN

REACTIONS (6)
  - DEEP VEIN THROMBOSIS [None]
  - ANXIETY [None]
  - PSYCHOLOGICAL TRAUMA [None]
  - INJURY [None]
  - EMOTIONAL DISTRESS [None]
  - PAIN [None]
